FAERS Safety Report 4803813-7 (Version None)
Quarter: 2005Q4

REPORT INFORMATION
  Report Type: 
  Country: None (occurrence: None)
  Receive Date: 20051019
  Receipt Date: 20050912
  Transmission Date: 20060501
  Serious: Yes (Other)
  Sender: FDA-Public Use
  Company Number: US-MERCK-0510USA07612

PATIENT
  Age: 38 Month
  Sex: Male

DRUGS (1)
  1. SINGULAIR [Suspect]
     Indication: BRONCHOSPASM
     Route: 048

REACTIONS (3)
  - ASTHMA [None]
  - GRAND MAL CONVULSION [None]
  - PNEUMONIA [None]
